FAERS Safety Report 10182100 (Version 1)
Quarter: 2014Q2

REPORT INFORMATION
  Report Type: Spontaneous
  Country: DE (occurrence: DE)
  Receive Date: 20140520
  Receipt Date: 20140520
  Transmission Date: 20141212
  Serious: Yes (Hospitalization)
  Sender: FDA-Public Use
  Company Number: DE-AMGEN INC.-DEUSP2014037090

PATIENT
  Age: 51 Year
  Sex: Female

DRUGS (3)
  1. ENBREL [Suspect]
     Indication: RHEUMATOID ARTHRITIS
     Dosage: 25 MG, WEEKLY
     Route: 065
     Dates: start: 20140319
  2. MTX                                /00113801/ [Concomitant]
     Dosage: 30 MG, WEEKLY
  3. PREDNISOLON                        /00016201/ [Concomitant]
     Dosage: 5 MG, DAILY

REACTIONS (1)
  - Polyneuropathy [Recovered/Resolved]
